FAERS Safety Report 5971407-6 (Version None)
Quarter: 2008Q4

REPORT INFORMATION
  Report Type: 
  Country: None (occurrence: None)
  Receive Date: 20081130
  Receipt Date: 20081125
  Transmission Date: 20090506
  Serious: Yes (Hospitalization)
  Sender: FDA-Public Use
  Company Number: ES-PFIZER INC-2008091827

PATIENT
  Age: 77 Year
  Sex: Female

DRUGS (6)
  1. ALDACTONE [Suspect]
     Indication: HYPERTROPHIC CARDIOMYOPATHY
     Route: 048
     Dates: start: 20060627
  2. IBUPROFEN TABLETS [Interacting]
     Indication: MUSCULOSKELETAL PAIN
     Route: 048
     Dates: start: 20080101
  3. SEGURIL [Interacting]
     Indication: HYPERTROPHIC CARDIOMYOPATHY
     Route: 048
  4. VERAPAMIL HCL [Concomitant]
     Route: 048
  5. MOTIVAN [Concomitant]
     Dosage: DAILY DOSE:20MG
     Route: 048
  6. TRANKIMAZIN [Concomitant]
     Dosage: DAILY DOSE:.5MG
     Route: 048

REACTIONS (2)
  - DRUG INTERACTION [None]
  - RENAL FAILURE ACUTE [None]
